FAERS Safety Report 11384668 (Version 1)
Quarter: 2015Q3

REPORT INFORMATION
  Report Type: Spontaneous
  Country: US (occurrence: US)
  Receive Date: 20150811
  Receipt Date: 20150811
  Transmission Date: 20151125
  Serious: Yes (Other)
  Sender: FDA-Public Use
  Company Number: US-ELI_LILLY_AND_COMPANY-US201107000440

PATIENT
  Age: 74 Year
  Sex: Male

DRUGS (2)
  1. CIALIS [Suspect]
     Active Substance: TADALAFIL
     Indication: ERECTILE DYSFUNCTION
     Dosage: 10 MG, PRN
  2. ALCOHOL. [Concomitant]
     Active Substance: ALCOHOL

REACTIONS (4)
  - Dehydration [Unknown]
  - Syncope [Unknown]
  - Fall [Unknown]
  - Hypotension [Unknown]
